FAERS Safety Report 5315895-7 (Version None)
Quarter: 2007Q1

REPORT INFORMATION
  Report Type: 
  Country: None (occurrence: None)
  Receive Date: 20070130
  Receipt Date: 20061030
  Transmission Date: 20070707
  Serious: No
  Sender: FDA-Public Use
  Company Number: 200618951US

PATIENT
  Age: 61 Year
  Sex: Female
  Weight: 65.91 kg

DRUGS (17)
  1. KETEK [Suspect]
     Indication: PLEURISY
     Dosage: 800 MG QD PO
     Route: 048
     Dates: start: 20061001, end: 20061005
  2. KETEK [Suspect]
     Indication: PLEURISY
     Dosage: 800 MG QD PO
     Route: 048
     Dates: start: 20061001, end: 20061001
  3. ERGOCALCIFEROL [Concomitant]
  4. CALCIUM PHOSPHATE [Concomitant]
  5. CALCIUM SODIUM [Concomitant]
  6. LACTATE (CALCIUM WITH VITAMIN D /01233101/) [Concomitant]
  7. TOCOPHERYL ACETATE (VITAMIN E) [Concomitant]
  8. ASCORBIC ACID [Concomitant]
  9. TOCOPHERYL ACETATE [Concomitant]
  10. RETINOL [Concomitant]
  11. ZINC [Concomitant]
  12. CALCIUM CHLORIDE [Concomitant]
  13. VITAMINS NOS [Concomitant]
  14. MINERALS NOS [Concomitant]
  15. VITAMIN B NOS (CENTRUM SILVER /01292501/) [Concomitant]
  16. GLUCOSAMINE [Concomitant]
  17. ALTACE [Concomitant]

REACTIONS (3)
  - CHEST PAIN [None]
  - DERMATITIS ALLERGIC [None]
  - RASH PRURITIC [None]
